FAERS Safety Report 8361342-0 (Version None)
Quarter: 2012Q2

REPORT INFORMATION
  Report Type: 
  Country: None (occurrence: None)
  Receive Date: 20120515
  Receipt Date: 20120511
  Transmission Date: 20120825
  Serious: Yes (Death, Other)
  Sender: FDA-Public Use
  Company Number: PHHY2012FR040389

PATIENT
  Sex: Female

DRUGS (11)
  1. IMIPENEM AND CILASTATIN SODIUM [Suspect]
     Indication: HYPERTHERMIA
     Route: 042
  2. GLIBENESE [Concomitant]
  3. RIFAMPICIN [Suspect]
     Dosage: 500 MG, UNK
     Route: 042
  4. FORADIL [Concomitant]
  5. ESOMEPRAZOLE MAGNESIUM [Concomitant]
  6. SPIRIVA [Concomitant]
  7. CORDARONE [Suspect]
     Indication: TACHYCARDIA
     Dates: start: 20120225
  8. BUDESONIDE [Concomitant]
  9. PULMICORT [Concomitant]
  10. ZYVOX [Suspect]
     Route: 042
     Dates: start: 20120306
  11. TOBI [Suspect]
     Dates: start: 20120223

REACTIONS (8)
  - BRONCHOSPASM [None]
  - URTICARIA [None]
  - BACTERIAL TEST POSITIVE [None]
  - CARDIAC ARREST [None]
  - HYPERTHERMIA [None]
  - SECRETION DISCHARGE [None]
  - TACHYCARDIA [None]
  - STENOTROPHOMONAS TEST POSITIVE [None]
